APPROVED DRUG PRODUCT: ZILXI
Active Ingredient: MINOCYCLINE HYDROCHLORIDE
Strength: EQ 1.5% BASE
Dosage Form/Route: AEROSOL, FOAM;TOPICAL
Application: N213690 | Product #001
Applicant: JOURNEY MEDICAL CORP
Approved: May 28, 2020 | RLD: Yes | RS: Yes | Type: RX

PATENTS:
Patent 10213512 | Expires: Oct 1, 2030
Patent 8992896 | Expires: Oct 1, 2030
Patent 9675700 | Expires: Oct 1, 2030
Patent 8865139 | Expires: Oct 1, 2030
Patent 10322186 | Expires: Oct 1, 2030
Patent 10946101 | Expires: Oct 1, 2030
Patent 12138311 | Expires: Oct 1, 2030
Patent 10265404 | Expires: Oct 1, 2030
Patent 8945516 | Expires: Oct 1, 2030